FAERS Safety Report 10072104 (Version 1)
Quarter: 2014Q2

REPORT INFORMATION
  Report Type: Spontaneous
  Country: US (occurrence: US)
  Receive Date: 20140411
  Receipt Date: 20140411
  Transmission Date: 20141212
  Serious: Yes (Hospitalization, Other)
  Sender: FDA-Public Use
  Company Number: US-TEVA-474682USA

PATIENT
  Age: 68 Year
  Sex: Male

DRUGS (10)
  1. BACTRIM [Suspect]
     Indication: ANTIFUNGAL PROPHYLAXIS
     Route: 065
  2. DOXORUBICIN [Suspect]
     Indication: DIFFUSE LARGE B-CELL LYMPHOMA STAGE IV
     Dosage: PART OF R-CHOP CHEMOTHERAPY
     Route: 065
  3. VINCRISTINE [Suspect]
     Indication: DIFFUSE LARGE B-CELL LYMPHOMA STAGE IV
     Dosage: PART OF R-CHOP CHEMOTHERAPY
     Route: 065
  4. RITUXIMAB [Suspect]
     Indication: DIFFUSE LARGE B-CELL LYMPHOMA STAGE IV
     Dosage: PART OF R-CHOP CHEMOTHERAPY
     Route: 065
  5. CYCLOPHOSPHAMIDE [Suspect]
     Indication: DIFFUSE LARGE B-CELL LYMPHOMA STAGE IV
     Dosage: PART OF R-CHOP CHEMOTHERAPY
     Route: 065
  6. PREDNISONE [Suspect]
     Indication: DIFFUSE LARGE B-CELL LYMPHOMA STAGE IV
     Dosage: PART OF R-CHOP CHEMOTHERAPY
     Route: 065
  7. CEFEPIME [Suspect]
     Indication: ANTI-INFECTIVE THERAPY
     Route: 065
  8. VANCOMYCIN [Suspect]
     Indication: ANTI-INFECTIVE THERAPY
     Route: 065
  9. OMEPRAZOLE [Concomitant]
     Indication: NAUSEA
     Dosage: AS NEEDED
     Route: 065
  10. PROCHLORPERAZINE [Concomitant]
     Indication: NAUSEA
     Dosage: AS NEEDED
     Route: 065

REACTIONS (4)
  - Febrile neutropenia [Recovered/Resolved]
  - Escherichia bacteraemia [Unknown]
  - Pneumocystis jirovecii pneumonia [Unknown]
  - Hepatosplenic candidiasis [Recovering/Resolving]
